FAERS Safety Report 18508418 (Version 1)
Quarter: 2020Q4

REPORT INFORMATION
  Report Type: Spontaneous
  Country: US (occurrence: US)
  Receive Date: 20201116
  Receipt Date: 20201116
  Transmission Date: 20210114
  Serious: Yes (Other)
  Sender: FDA-Public Use
  Company Number: US-BIOVITRUM-2020US6152

PATIENT
  Age: 14 Month
  Sex: Male

DRUGS (2)
  1. ANAKINRA [Suspect]
     Active Substance: ANAKINRA
     Indication: STILL^S DISEASE
  2. METHYLPREDNISOLONE. [Concomitant]
     Active Substance: METHYLPREDNISOLONE

REACTIONS (12)
  - Productive cough [Unknown]
  - Condition aggravated [Unknown]
  - Hypoxia [Unknown]
  - Off label use [Unknown]
  - Interstitial lung disease [Unknown]
  - Pneumonia lipoid [Unknown]
  - Parainfluenzae virus infection [Unknown]
  - Pneumonia [Unknown]
  - Gastroenteritis [Unknown]
  - Still^s disease [Unknown]
  - Haemophagocytic lymphohistiocytosis [Unknown]
  - Alveolar proteinosis [Unknown]
